FAERS Safety Report 7598443-0 (Version None)
Quarter: 2011Q3

REPORT INFORMATION
  Report Type: 
  Country: None (occurrence: None)
  Receive Date: 20110708
  Receipt Date: 20110629
  Transmission Date: 20111222
  Serious: Yes (Disabling)
  Sender: FDA-Public Use
  Company Number: US-MERCK-0805USA00460

PATIENT
  Age: 56 Year
  Sex: Female
  Weight: 67 kg

DRUGS (3)
  1. FEXOFENADINE HYDROCHLORIDE [Concomitant]
     Indication: SEASONAL ALLERGY
     Route: 065
     Dates: start: 20020101
  2. PRINIVIL [Concomitant]
     Indication: HYPERTENSION
     Route: 065
  3. FOSAMAX [Suspect]
     Indication: OSTEOPENIA
     Route: 048
     Dates: start: 20020901, end: 20060101

REACTIONS (26)
  - JAW DISORDER [None]
  - ARTHRITIS [None]
  - CUBITAL TUNNEL SYNDROME [None]
  - MICTURITION URGENCY [None]
  - DEMYELINATION [None]
  - MUSCULOSKELETAL PAIN [None]
  - VAGINAL PROLAPSE [None]
  - HYPERLIPIDAEMIA [None]
  - INTERVERTEBRAL DISC DEGENERATION [None]
  - TRIGEMINAL NEURALGIA [None]
  - RECTOCELE [None]
  - ADVERSE DRUG REACTION [None]
  - MUCOSAL ULCERATION [None]
  - MUSCLE STRAIN [None]
  - GINGIVAL SWELLING [None]
  - ANXIETY [None]
  - POLLAKIURIA [None]
  - TOOTH FRACTURE [None]
  - NERVE COMPRESSION [None]
  - DEPRESSION [None]
  - TOOTH DISORDER [None]
  - OSTEOPOROSIS [None]
  - URINARY INCONTINENCE [None]
  - OSTEONECROSIS OF JAW [None]
  - FALL [None]
  - FOOT FRACTURE [None]
